FAERS Safety Report 5918840-6 (Version None)
Quarter: 2008Q4

REPORT INFORMATION
  Report Type: 
  Country: None (occurrence: None)
  Receive Date: 20081015
  Receipt Date: 20081002
  Transmission Date: 20090506
  Serious: Yes (Hospitalization)
  Sender: FDA-Public Use
  Company Number: JP-AMGEN-US308130

PATIENT
  Sex: Male
  Weight: 60 kg

DRUGS (9)
  1. ENBREL [Suspect]
     Indication: RHEUMATOID ARTHRITIS
     Route: 058
     Dates: start: 20080811, end: 20080901
  2. RIMATIL [Concomitant]
     Dosage: UNSPECIFIED
     Dates: start: 20070601
  3. FAMOTIDINE [Concomitant]
  4. FOLIAMIN [Concomitant]
  5. BONALON [Concomitant]
  6. CELECOXIB [Concomitant]
  7. PREDNISOLONE [Concomitant]
     Dosage: UNSPECIFIED
     Dates: start: 20030101
  8. RHEUMATREX [Concomitant]
     Dosage: 6 MG; UNSPEICIFIED FREQUENCY
     Dates: start: 20080401, end: 20080601
  9. RHEUMATREX [Concomitant]
     Dosage: 8 MG; UNSPECIFIED FREQUENCY
     Dates: start: 20080601

REACTIONS (2)
  - CUTANEOUS VASCULITIS [None]
  - URTICARIA [None]
